FAERS Safety Report 8969108 (Version 1)
Quarter: 2012Q4

REPORT INFORMATION
  Report Type: Spontaneous
  Country: US (occurrence: None)
  Receive Date: 20121214
  Receipt Date: 20121214
  Transmission Date: 20130627
  Serious: Yes (Other)
  Sender: FDA-Public Use
  Company Number: None

PATIENT
  Age: 78 Year
  Sex: Female
  Weight: 97.52 kg

DRUGS (2)
  1. SIMVASTATIN [Suspect]
     Dosage: 1 pill  once a day  po
     Route: 048
     Dates: start: 20121030, end: 20121203
  2. DIOVAN [Concomitant]

REACTIONS (7)
  - Myalgia [None]
  - Tenderness [None]
  - Asthenia [None]
  - Fatigue [None]
  - Joint swelling [None]
  - Arthralgia [None]
  - Insomnia [None]
